FAERS Safety Report 17263799 (Version 4)
Quarter: 2020Q4

REPORT INFORMATION
  Report Type: Spontaneous
  Country: NZ (occurrence: NZ)
  Receive Date: 20200113
  Receipt Date: 20201113
  Transmission Date: 20210113
  Serious: Yes (Death)
  Sender: FDA-Public Use
  Company Number: NZ-MYLANLABS-2020M1004331

PATIENT
  Sex: Male

DRUGS (7)
  1. MIDODRINE [Concomitant]
     Active Substance: MIDODRINE
     Dosage: 5 MILLIGRAM, BID
  2. BISACODYL. [Concomitant]
     Active Substance: BISACODYL
     Dosage: 5MG NOCTE
  3. FLUDROCORTISONE [Concomitant]
     Active Substance: FLUDROCORTISONE
     Indication: HYPOTENSION
     Dosage: 100MG, 2 OD
  4. CLOZARIL [Suspect]
     Active Substance: CLOZAPINE
     Indication: SCHIZOPHRENIA
     Dosage: 12.5 MILLIGRAM, 1 MIDDAY, 2 DINNER
     Route: 048
     Dates: start: 20191115
  5. CLOZARIL [Suspect]
     Active Substance: CLOZAPINE
     Indication: DEMENTIA
     Dosage: UNK
     Route: 048
     Dates: start: 20191118
  6. CLOZARIL [Suspect]
     Active Substance: CLOZAPINE
     Indication: PSYCHOTIC DISORDER
  7. ASPRIN [Concomitant]
     Active Substance: ASPIRIN
     Dosage: 100MG EC, 1 OD

REACTIONS (2)
  - Pneumonia [Fatal]
  - Dementia [Fatal]
